FAERS Safety Report 4758637-6 (Version None)
Quarter: 2005Q3

REPORT INFORMATION
  Report Type: 
  Country: None (occurrence: None)
  Receive Date: 20050826
  Receipt Date: 20050816
  Transmission Date: 20060218
  Serious: Yes (Life-Threatening)
  Sender: FDA-Public Use
  Company Number: 2005117586

PATIENT
  Age: 32 Year
  Sex: Female

DRUGS (1)
  1. GLADEM (SERTRALINE) [Suspect]
     Indication: DEPRESSION
     Dosage: ORAL
     Route: 048
     Dates: start: 20000501, end: 20000615

REACTIONS (10)
  - AGGRESSION [None]
  - ANGER [None]
  - BIPOLAR I DISORDER [None]
  - FLIGHT OF IDEAS [None]
  - IMPAIRED WORK ABILITY [None]
  - LOGORRHOEA [None]
  - MANIA [None]
  - PHYSICAL ASSAULT [None]
  - PSYCHOTIC DISORDER [None]
  - SCHIZOAFFECTIVE DISORDER [None]
